FAERS Safety Report 4704925-9 (Version None)
Quarter: 2005Q2

REPORT INFORMATION
  Report Type: 
  Country: None (occurrence: None)
  Receive Date: 20050630
  Receipt Date: 20050630
  Transmission Date: 20051028
  Serious: No
  Sender: FDA-Public Use
  Company Number: None

PATIENT
  Age: 33 Year
  Sex: Female
  Weight: 55.8 kg

DRUGS (26)
  1. TIGECYCLINE   50 MG   WYETH [Suspect]
     Indication: CYSTIC FIBROSIS
     Dosage: 50 MG  BID   INTRAVENOU
     Route: 042
     Dates: start: 20050624, end: 20050629
  2. TIGECYCLINE   50 MG   WYETH [Suspect]
     Indication: MYCOBACTERIAL INFECTION
     Dosage: 50 MG  BID   INTRAVENOU
     Route: 042
     Dates: start: 20050624, end: 20050629
  3. ALBUTEROL [Concomitant]
  4. PULMOZYME [Concomitant]
  5. COLYMYCIN [Concomitant]
  6. CIPRO [Concomitant]
  7. BACTRIM DS [Concomitant]
  8. LORAZEPAM [Concomitant]
  9. AMNIOCAPROIC ACID [Concomitant]
  10. PREDNISONE TAB [Concomitant]
  11. SINGULAIR [Concomitant]
  12. HYZAAR [Concomitant]
  13. CLONIDINE [Concomitant]
  14. LANTUS [Concomitant]
  15. HUMALOG SSI [Concomitant]
  16. URSODIOL [Concomitant]
  17. MEPHYTON [Concomitant]
  18. PROTONIX [Concomitant]
  19. VITAMIN E [Concomitant]
  20. CA+VIT D [Concomitant]
  21. PANCREASE MTE [Concomitant]
  22. MAG OXIDE [Concomitant]
  23. TYLENOL W/ CODEINE NO. 3 [Concomitant]
  24. ZINC [Concomitant]
  25. FERROUS SULFATE [Concomitant]
  26. VIT C [Concomitant]

REACTIONS (1)
  - HYPOGLYCAEMIA [None]
